FAERS Safety Report 21840233 (Version 1)
Quarter: 2023Q1

REPORT INFORMATION
  Report Type: Spontaneous
  Country: US (occurrence: US)
  Receive Date: 20230110
  Receipt Date: 20230110
  Transmission Date: 20230418
  Serious: No
  Sender: FDA-Public Use
  Company Number: US-TARO PHARMACEUTICALS USA INC.-2022TAR01022

PATIENT

DRUGS (2)
  1. CLOBETASOL PROPIONATE [Suspect]
     Active Substance: CLOBETASOL PROPIONATE
     Indication: Skin disorder
     Dosage: UNK, OD
     Route: 061
     Dates: start: 2021
  2. CLOBETASOL PROPIONATE [Suspect]
     Active Substance: CLOBETASOL PROPIONATE
     Dosage: UNK, ONLY APPLIED THE SOLUTION WHERE IT IS NEEDED ON THE SCALP
     Route: 061
     Dates: start: 202207

REACTIONS (4)
  - Erythema [Recovered/Resolved]
  - Expired product administered [Unknown]
  - Skin irritation [Recovered/Resolved]
  - Drug ineffective [Unknown]

NARRATIVE: CASE EVENT DATE: 20210101
